FAERS Safety Report 16657327 (Version 1)
Quarter: 2019Q3

REPORT INFORMATION
  Report Type: Spontaneous
  Country: GB (occurrence: GB)
  Receive Date: 20190801
  Receipt Date: 20190801
  Transmission Date: 20191004
  Serious: Yes (Other)
  Sender: FDA-Public Use
  Company Number: GB-LEO PHARMA-323459

PATIENT
  Age: 66 Year
  Sex: Female
  Weight: 44.45 kg

DRUGS (2)
  1. PICATO [Suspect]
     Active Substance: INGENOL MEBUTATE
     Indication: PHOTODERMATOSIS
     Dosage: TUBE
     Route: 061
     Dates: start: 20190704, end: 20190706
  2. ATORVASTATIN [Concomitant]
     Active Substance: ATORVASTATIN
     Indication: PRODUCT USED FOR UNKNOWN INDICATION

REACTIONS (8)
  - Thirst [Not Recovered/Not Resolved]
  - Eye irritation [Not Recovered/Not Resolved]
  - Application site scab [Not Recovered/Not Resolved]
  - Application site vesicles [Not Recovered/Not Resolved]
  - Periorbital swelling [Not Recovered/Not Resolved]
  - Product use in unapproved indication [Unknown]
  - Headache [Not Recovered/Not Resolved]
  - Eye swelling [Not Recovered/Not Resolved]

NARRATIVE: CASE EVENT DATE: 20190707
